FAERS Safety Report 9670898 (Version 2)
Quarter: 2013Q4

REPORT INFORMATION
  Report Type: Spontaneous
  Country: US (occurrence: US)
  Receive Date: 20131106
  Receipt Date: 20131126
  Transmission Date: 20140711
  Serious: Yes (Other)
  Sender: FDA-Public Use
  Company Number: US-JNJFOC-20131017713

PATIENT
  Age: 39 Year
  Sex: Female

DRUGS (3)
  1. PREZISTA [Suspect]
     Indication: HIV INFECTION
     Route: 065
  2. PREZISTA [Suspect]
     Indication: HIV INFECTION
     Route: 065
  3. NORVIR [Suspect]
     Indication: HIV INFECTION
     Route: 065

REACTIONS (4)
  - Foetal death [Unknown]
  - Suicidal ideation [Unknown]
  - Depression [Unknown]
  - Exposure during pregnancy [Recovered/Resolved]
